FAERS Safety Report 23603941 (Version 1)
Quarter: 2024Q1

REPORT INFORMATION
  Report Type: Spontaneous
  Country: US (occurrence: US)
  Receive Date: 20240307
  Receipt Date: 20240307
  Transmission Date: 20240409
  Serious: Yes (Hospitalization, Other)
  Sender: FDA-Public Use
  Company Number: US-CELLTRION INC.-2024US005458

PATIENT

DRUGS (2)
  1. INFLECTRA [Suspect]
     Active Substance: INFLIXIMAB-DYYB
     Indication: Product used for unknown indication
     Dosage: 5MG/KG AT WEEK 0, 2, 6 AND AFTER EVERY 8 WEEKS
  2. INFLECTRA [Suspect]
     Active Substance: INFLIXIMAB-DYYB
     Dosage: 351 MG
     Dates: start: 20201201

REACTIONS (12)
  - Skin lesion [Unknown]
  - Hidradenitis [Unknown]
  - Pyrexia [Unknown]
  - Abscess limb [Unknown]
  - Subcutaneous abscess [Unknown]
  - Drug intolerance [Unknown]
  - Feeling hot [Unknown]
  - Blood pressure decreased [Unknown]
  - Asthenia [Unknown]
  - Nausea [Unknown]
  - Vomiting [Unknown]
  - Intentional dose omission [Unknown]

NARRATIVE: CASE EVENT DATE: 20201201
